FAERS Safety Report 9127025 (Version 2)
Quarter: 2013Q3

REPORT INFORMATION
  Report Type: Report from Study
  Country: ES (occurrence: ES)
  Receive Date: 20130228
  Receipt Date: 20130906
  Transmission Date: 20140515
  Serious: No
  Sender: FDA-Public Use
  Company Number: PHHY2013ES018249

PATIENT
  Age: 50 Year
  Sex: Female

DRUGS (2)
  1. EXTAVIA [Suspect]
     Indication: MULTIPLE SCLEROSIS
     Dosage: 1 ML, UNK
     Route: 058
     Dates: start: 20121210, end: 201307
  2. TRYPTIZOL [Concomitant]
     Dosage: UNK UKN, UNK

REACTIONS (3)
  - Mobility decreased [Not Recovered/Not Resolved]
  - Limb discomfort [Unknown]
  - Fatigue [Not Recovered/Not Resolved]
